FAERS Safety Report 10491194 (Version 1)
Quarter: 2014Q4

REPORT INFORMATION
  Report Type: Spontaneous
  Country: US (occurrence: US)
  Receive Date: 20141002
  Receipt Date: 20141002
  Transmission Date: 20150528
  Serious: No
  Sender: FDA-Public Use
  Company Number: US-GLAXOSMITHKLINE-A1049075A

PATIENT
  Sex: Female

DRUGS (6)
  1. HEART MEDICATION [Concomitant]
     Active Substance: UNSPECIFIED INGREDIENT
  2. XOPENEX [Concomitant]
     Active Substance: LEVALBUTEROL HYDROCHLORIDE
  3. COUMADIN [Concomitant]
     Active Substance: WARFARIN SODIUM
  4. TRACLEER [Concomitant]
     Active Substance: BOSENTAN\BOSENTAN MONOHYDRATE
  5. XOPENEX [Concomitant]
     Active Substance: LEVALBUTEROL HYDROCHLORIDE
  6. ADVAIR HFA [Suspect]
     Active Substance: FLUTICASONE PROPIONATE\SALMETEROL XINAFOATE
     Indication: ASTHMA
     Dosage: 1PUFF TWICE PER DAY
     Route: 055
     Dates: start: 2005

REACTIONS (2)
  - Aphasia [Recovered/Resolved]
  - Throat irritation [Recovered/Resolved]
